FAERS Safety Report 7023103-4 (Version None)
Quarter: 2010Q3

REPORT INFORMATION
  Report Type: 
  Country: None (occurrence: None)
  Receive Date: 20100930
  Receipt Date: 20100921
  Transmission Date: 20110219
  Serious: Yes (Other)
  Sender: FDA-Public Use
  Company Number: PHHY2010ES62202

PATIENT
  Age: 55 Year
  Sex: Male

DRUGS (1)
  1. GLEEVEC [Suspect]
     Dosage: 400 MG, QD
     Route: 048
     Dates: start: 20050826

REACTIONS (3)
  - VISION BLURRED [None]
  - VISUAL ACUITY REDUCED [None]
  - WEIGHT INCREASED [None]
